FAERS Safety Report 4589564-5 (Version None)
Quarter: 2005Q1

REPORT INFORMATION
  Report Type: 
  Country: None (occurrence: None)
  Receive Date: 20050217
  Receipt Date: 20050201
  Transmission Date: 20050727
  Serious: Yes (Death)
  Sender: FDA-Public Use
  Company Number: 10096

PATIENT
  Age: 41 Year
  Sex: Male

DRUGS (2)
  1. FENTANYL [Suspect]
     Dosage: IV
     Route: 042
  2. MORPHINE [Suspect]

REACTIONS (5)
  - ALCOHOL USE [None]
  - DRUG SCREEN POSITIVE [None]
  - DRUG TOXICITY [None]
  - INTENTIONAL MISUSE [None]
  - MEDICATION ERROR [None]
